FAERS Safety Report 20697141 (Version 1)
Quarter: 2022Q2

REPORT INFORMATION
  Report Type: Spontaneous
  Country: CN (occurrence: None)
  Receive Date: 20220411
  Receipt Date: 20220411
  Transmission Date: 20220721
  Serious: Yes (Death, Hospitalization)
  Sender: FDA-Public Use
  Company Number: 2022A140541

PATIENT
  Age: 64 Year
  Sex: Male
  Weight: 55 kg

DRUGS (1)
  1. IMFINZI [Suspect]
     Active Substance: DURVALUMAB
     Dosage: 1000MG/CYCLE
     Route: 042
     Dates: start: 20211210, end: 20211210

REACTIONS (5)
  - Blood creatine phosphokinase increased [Fatal]
  - Hepatic function abnormal [Fatal]
  - Transaminases increased [Fatal]
  - Full blood count abnormal [Unknown]
  - Haemoglobin decreased [Unknown]
